FAERS Safety Report 7260628-0 (Version None)
Quarter: 2011Q1

REPORT INFORMATION
  Report Type: 
  Country: None (occurrence: None)
  Receive Date: 20110130
  Receipt Date: 20101119
  Transmission Date: 20110831
  Serious: No
  Sender: FDA-Public Use
  Company Number: US-ABBOTT-10P-163-0687048-00

PATIENT
  Age: 27 Year
  Sex: Male

DRUGS (4)
  1. LIALDA [Concomitant]
     Indication: CROHN'S DISEASE
  2. HUMIRA [Suspect]
     Indication: CROHN'S DISEASE
     Route: 058
     Dates: start: 20101119
  3. PREDNISONE [Concomitant]
     Indication: CROHN'S DISEASE
  4. FOSAMAX PLUS D [Concomitant]
     Indication: OSTEOPENIA

REACTIONS (1)
  - DYSGEUSIA [None]
